FAERS Safety Report 5492245-7 (Version None)
Quarter: 2007Q4

REPORT INFORMATION
  Report Type: 
  Country: None (occurrence: None)
  Receive Date: 20071015
  Receipt Date: 20070706
  Transmission Date: 20080405
  Serious: No
  Sender: FDA-Public Use
  Company Number: 2007SP002475

PATIENT
  Age: 65 Year
  Sex: Male
  Weight: 64.4108 kg

DRUGS (5)
  1. LUNESTA [Suspect]
     Indication: INSOMNIA
     Dosage: 1 MG;HS;ORAL, 2 MG;HS;ORAL
     Route: 048
     Dates: start: 20070703, end: 20070703
  2. LUNESTA [Suspect]
     Indication: INSOMNIA
     Dosage: 1 MG;HS;ORAL, 2 MG;HS;ORAL
     Route: 048
     Dates: start: 20070704, end: 20070705
  3. BUSPAR [Concomitant]
  4. ATIVAN [Concomitant]
  5. KLONOPIN [Concomitant]

REACTIONS (1)
  - MIDDLE INSOMNIA [None]
